FAERS Safety Report 18897909 (Version 1)
Quarter: 2021Q1

REPORT INFORMATION
  Report Type: Spontaneous
  Country: US (occurrence: US)
  Receive Date: 20210212
  Receipt Date: 20210212
  Transmission Date: 20210420
  Serious: Yes (Life-Threatening, Hospitalization, Disabling)
  Sender: FDA-Public Use
  Company Number: None

PATIENT
  Age: 77 Year
  Sex: Female
  Weight: 45.9 kg

DRUGS (9)
  1. VITAMIN D [Concomitant]
     Active Substance: VITAMIN D NOS
  2. LOSARTAN. [Concomitant]
     Active Substance: LOSARTAN
  3. ZINC. [Concomitant]
     Active Substance: ZINC
  4. CALCIUM [Concomitant]
     Active Substance: CALCIUM
  5. LOVASTATIN. [Concomitant]
     Active Substance: LOVASTATIN
  6. VITAMIN C [Concomitant]
     Active Substance: ASCORBIC ACID
  7. B COMPLEX VITAMIN [Concomitant]
  8. PROLIA [Suspect]
     Active Substance: DENOSUMAB
     Indication: OSTEOPOROSIS
     Dosage: ?          OTHER FREQUENCY:EVERY SIX MONTHS;?
     Route: 030
     Dates: start: 20191230, end: 20200630
  9. ALEVE [Concomitant]
     Active Substance: NAPROXEN SODIUM

REACTIONS (3)
  - Tooth extraction [None]
  - Squamous cell carcinoma [None]
  - Lip and/or oral cavity cancer [None]

NARRATIVE: CASE EVENT DATE: 20200720
